FAERS Safety Report 4634672-3 (Version None)
Quarter: 2005Q2

REPORT INFORMATION
  Report Type: 
  Country: None (occurrence: None)
  Receive Date: 20050413
  Receipt Date: 20050330
  Transmission Date: 20051028
  Serious: Yes (Hospitalization)
  Sender: FDA-Public Use
  Company Number: 2005051916

PATIENT
  Age: 29 Year
  Sex: Male

DRUGS (3)
  1. SULFASALAZINE [Suspect]
     Indication: JUVENILE ARTHRITIS
     Dosage: ORAL
     Route: 048
  2. METHOTREXATE [Suspect]
     Indication: JUVENILE ARTHRITIS
     Dosage: ORAL
     Route: 048
  3. PREDNISONE [Suspect]
     Indication: JUVENILE ARTHRITIS
     Dosage: ORAL
     Route: 048

REACTIONS (1)
  - ACUTE MYELOID LEUKAEMIA [None]
